FAERS Safety Report 14857278 (Version 1)
Quarter: 2018Q2

REPORT INFORMATION
  Report Type: Spontaneous
  Country: US (occurrence: US)
  Receive Date: 20180508
  Receipt Date: 20180508
  Transmission Date: 20180711
  Serious: No
  Sender: FDA-Public Use
  Company Number: US-RADIUS HEALTH INC.-2018US000252

PATIENT
  Age: 58 Year
  Sex: Female
  Weight: 68.27 kg

DRUGS (1)
  1. TYMLOS [Suspect]
     Active Substance: ABALOPARATIDE
     Indication: OSTEOPOROSIS POSTMENOPAUSAL
     Dosage: 80 MCG, DAILY
     Route: 058
     Dates: start: 201802, end: 201802

REACTIONS (3)
  - Nausea [Unknown]
  - Heart rate increased [Unknown]
  - Vertigo [Unknown]

NARRATIVE: CASE EVENT DATE: 201802
